FAERS Safety Report 8624914-1 (Version None)
Quarter: 2012Q3

REPORT INFORMATION
  Report Type: 
  Country: None (occurrence: None)
  Receive Date: 20120827
  Receipt Date: 20120820
  Transmission Date: 20120928
  Serious: Yes (Other)
  Sender: FDA-Public Use
  Company Number: FR-UCBSA-064001

PATIENT
  Age: 63 Year
  Sex: Female

DRUGS (6)
  1. ATORVASTATIN [Concomitant]
     Route: 048
  2. COUMADIN [Concomitant]
     Route: 048
  3. CLOBAZAM [Concomitant]
     Dates: end: 20120701
  4. KEPPRA [Suspect]
     Route: 048
     Dates: start: 20120708
  5. PREDNISONE TAB [Concomitant]
     Indication: VIITH NERVE PARALYSIS
     Dosage: INITIALLY 60 MG WITH PREOGRESSIVE DECREASE IN DAILY DOSE UPTO 5 MG
     Route: 048
     Dates: start: 20120701
  6. LEVOTHYROXINE SODIUM [Concomitant]
     Dosage: DOSE: 50 MCG
     Route: 048

REACTIONS (1)
  - HYPONATRAEMIA [None]
